FAERS Safety Report 22315004 (Version 1)
Quarter: 2023Q2

REPORT INFORMATION
  Report Type: Spontaneous
  Country: US (occurrence: US)
  Receive Date: 20230512
  Receipt Date: 20230512
  Transmission Date: 20230721
  Serious: No
  Sender: FDA-Public Use
  Company Number: US-Covis Pharma GmbH-2023COV01093

PATIENT
  Sex: Male
  Weight: 166.89 kg

DRUGS (5)
  1. RILUZOLE [Suspect]
     Active Substance: RILUZOLE
     Indication: Product used for unknown indication
     Dosage: UNKNOWN
     Route: 065
  2. EDARAVONE [Suspect]
     Active Substance: EDARAVONE
     Indication: Amyotrophic lateral sclerosis
     Dosage: 105 MILLIGRAM, QD FOR 10 DAYS OUT OF 14 DAYS, FOLLOWED BY 14-DAY DRUG-FREE PERIOD
     Route: 048
     Dates: start: 20230222
  3. VITAMIN B12 [Concomitant]
     Active Substance: CYANOCOBALAMIN
     Indication: Product used for unknown indication
  4. ADVIL [Concomitant]
     Active Substance: IBUPROFEN
     Indication: Product used for unknown indication
  5. Zegerd (Omeprazole, Sodium bicarbonate) [Concomitant]
     Indication: Product used for unknown indication

REACTIONS (2)
  - Drug ineffective [Unknown]
  - Urinary tract infection [Unknown]
